FAERS Safety Report 5604243-0 (Version None)
Quarter: 2008Q1

REPORT INFORMATION
  Report Type: 
  Country: None (occurrence: None)
  Receive Date: 20080128
  Receipt Date: 20080115
  Transmission Date: 20080703
  Serious: Yes (Hospitalization, Other)
  Sender: FDA-Public Use
  Company Number: US-ELI_LILLY_AND_COMPANY-US200801002992

PATIENT
  Sex: Female

DRUGS (6)
  1. FORTEO [Suspect]
     Indication: OSTEOPOROSIS
     Dosage: UNK, UNK
     Dates: start: 20071113, end: 20071201
  2. LEVOTHYROXINE SODIUM [Concomitant]
  3. KLOR-CON [Concomitant]
  4. LISINOPRIL [Concomitant]
  5. TYLENOL W/ CODEINE [Concomitant]
  6. METOPROLOL TARTRATE [Concomitant]

REACTIONS (3)
  - BACK DISORDER [None]
  - INTERVERTEBRAL DISC DISORDER [None]
  - RENAL CELL CARCINOMA [None]
